FAERS Safety Report 7207615-6 (Version None)
Quarter: 2011Q1

REPORT INFORMATION
  Report Type: 
  Country: None (occurrence: None)
  Receive Date: 20110103
  Receipt Date: 20101222
  Transmission Date: 20110831
  Serious: Yes (Disabling)
  Sender: FDA-Public Use
  Company Number: FR-ASTRAZENECA-2010SE51283

PATIENT
  Age: 20540 Day
  Sex: Male

DRUGS (3)
  1. FONZYLANE [Concomitant]
     Route: 048
  2. CRESTOR [Suspect]
     Indication: HYPERCHOLESTEROLAEMIA
     Route: 048
     Dates: start: 20070101, end: 20101027
  3. KARDEGIC [Concomitant]
     Route: 048

REACTIONS (1)
  - MUSCLE RUPTURE [None]
